FAERS Safety Report 9014802 (Version 2)
Quarter: 2013Q1

REPORT INFORMATION
  Report Type: Spontaneous
  Country: US (occurrence: US)
  Receive Date: 20130115
  Receipt Date: 20130204
  Transmission Date: 20140127
  Serious: Yes (Disabling)
  Sender: FDA-Public Use
  Company Number: US-009507513-1301USA003988

PATIENT
  Age: 14 Year
  Sex: Male

DRUGS (2)
  1. DULERA [Suspect]
     Indication: ASTHMA
     Dosage: 200/5 MCG, TAKEN 2 PUFFS, BID
     Route: 055
     Dates: start: 201208, end: 20121220
  2. DULERA [Suspect]
     Dosage: 100/5 MCG, FOR UNSPECIFIC TIME
     Route: 055
     Dates: end: 2012

REACTIONS (2)
  - Muscle spasms [Recovered/Resolved]
  - Muscular weakness [Recovered/Resolved]
